FAERS Safety Report 21711851 (Version 1)
Quarter: 2022Q4

REPORT INFORMATION
  Report Type: Spontaneous
  Country: US (occurrence: US)
  Receive Date: 20221212
  Receipt Date: 20221212
  Transmission Date: 20230112
  Serious: Yes (Other)
  Sender: FDA-Public Use
  Company Number: US-HETERO-HET2022US03066

PATIENT
  Age: 15 Year
  Sex: Female

DRUGS (6)
  1. LITHIUM [Interacting]
     Active Substance: LITHIUM
     Indication: Mania
     Dosage: 600 MG, QD
     Route: 065
  2. LITHIUM [Interacting]
     Active Substance: LITHIUM
     Indication: Psychotic symptom
  3. LITHIUM [Interacting]
     Active Substance: LITHIUM
     Indication: Bipolar I disorder
  4. RISPERIDONE [Interacting]
     Active Substance: RISPERIDONE
     Indication: Psychotic symptom
     Dosage: 2 MG, QD
     Route: 048
  5. RISPERIDONE [Interacting]
     Active Substance: RISPERIDONE
     Indication: Mania
     Dosage: 6 MG
     Route: 048
  6. RISPERIDONE [Interacting]
     Active Substance: RISPERIDONE
     Indication: Bipolar I disorder

REACTIONS (3)
  - Antipsychotic drug level increased [Recovered/Resolved]
  - Parkinsonism [Recovered/Resolved]
  - Drug interaction [Recovered/Resolved]
